FAERS Safety Report 5765614-5 (Version None)
Quarter: 2008Q2

REPORT INFORMATION
  Report Type: 
  Country: None (occurrence: None)
  Receive Date: 20080605
  Receipt Date: 20080521
  Transmission Date: 20081010
  Serious: Yes (Congenital Anomaly)
  Sender: FDA-Public Use
  Company Number: E2090-00392-SPO-JP

PATIENT
  Sex: Female
  Weight: 3.45 kg

DRUGS (1)
  1. ZONISAMIDE [Suspect]
     Indication: DRUG EXPOSURE DURING PREGNANCY
     Dosage: 300 MG, 1 IN 1 D, INTRA-UTERINE
     Route: 015

REACTIONS (22)
  - APNOEA [None]
  - BRADYCARDIA [None]
  - CAESAREAN SECTION [None]
  - CAMPTODACTYLY CONGENITAL [None]
  - CEREBRAL VENTRICLE DILATATION [None]
  - DEAFNESS NEUROSENSORY [None]
  - DEVELOPMENTAL DELAY [None]
  - EPILEPSY [None]
  - FEEDING DISORDER NEONATAL [None]
  - FOETAL DISTRESS SYNDROME [None]
  - FOETAL MOVEMENTS DECREASED [None]
  - HYPOTONIA NEONATAL [None]
  - LIMB MALFORMATION [None]
  - MATERNAL DRUGS AFFECTING FOETUS [None]
  - MOEBIUS II SYNDROME [None]
  - MUSCLE CONTRACTURE [None]
  - NEONATAL RESPIRATORY DISTRESS SYNDROME [None]
  - NYSTAGMUS [None]
  - STRIDOR [None]
  - TALIPES [None]
  - VENTRICULAR SEPTAL DEFECT [None]
  - VOCAL CORD PARALYSIS [None]
